FAERS Safety Report 5032216-8 (Version None)
Quarter: 2006Q2

REPORT INFORMATION
  Report Type: 
  Country: None (occurrence: None)
  Receive Date: 20060619
  Receipt Date: 20060604
  Transmission Date: 20061013
  Serious: Yes (Hospitalization)
  Sender: FDA-Public Use
  Company Number: HQWYE982306JUN06

PATIENT
  Age: 40 Year
  Sex: Female
  Weight: 54.03 kg

DRUGS (3)
  1. PROTONIX [Suspect]
     Indication: GASTROOESOPHAGEAL REFLUX DISEASE
     Dosage: INTRAVENOUS
     Route: 042
     Dates: start: 20060201, end: 20060201
  2. PROTONIX [Suspect]
     Indication: GASTROOESOPHAGEAL REFLUX DISEASE
     Dosage: 40 MG 1X PER 1 DAY, ORAL
     Route: 048
     Dates: start: 20060201, end: 20060501
  3. XANAX [Concomitant]

REACTIONS (10)
  - ANOREXIA [None]
  - BLOOD PRESSURE ABNORMAL [None]
  - DEHYDRATION [None]
  - DIZZINESS [None]
  - DRY SKIN [None]
  - HYPERAESTHESIA [None]
  - MUSCULAR WEAKNESS [None]
  - PAIN OF SKIN [None]
  - UNEVALUABLE EVENT [None]
  - WEIGHT DECREASED [None]
